FAERS Safety Report 6700393-6 (Version None)
Quarter: 2010Q2

REPORT INFORMATION
  Report Type: 
  Country: None (occurrence: None)
  Receive Date: 20100428
  Receipt Date: 20100426
  Transmission Date: 20101027
  Serious: Yes (Life-Threatening)
  Sender: FDA-Public Use
  Company Number: FR-ASTRAZENECA-2010SE18511

PATIENT
  Age: 74 Year
  Sex: Female
  Weight: 70 kg

DRUGS (12)
  1. DIPRIVAN [Suspect]
     Indication: INDUCTION OF ANAESTHESIA
     Route: 042
     Dates: start: 20081209
  2. CLINDAMYCIN HCL [Suspect]
     Indication: ANTIBIOTIC PROPHYLAXIS
     Route: 042
     Dates: start: 20081209
  3. SUFENTA PRESERVATIVE FREE [Concomitant]
     Indication: INDUCTION OF ANAESTHESIA
     Route: 042
     Dates: start: 20081209
  4. TRACRIUM [Concomitant]
     Indication: INDUCTION OF ANAESTHESIA
     Route: 042
     Dates: start: 20081209
  5. DI ANTALVIC [Concomitant]
  6. NEURONTIN [Concomitant]
     Dates: start: 20081208
  7. LEXOMYL [Concomitant]
  8. STRESAM [Concomitant]
  9. PRAVASTATIN SODIUM [Concomitant]
  10. ACTONEL [Concomitant]
  11. LEVOTHYROX [Concomitant]
  12. NOROXIN [Concomitant]

REACTIONS (1)
  - CIRCULATORY COLLAPSE [None]
